FAERS Safety Report 14225428 (Version 1)
Quarter: 2017Q4

REPORT INFORMATION
  Report Type: Spontaneous
  Country: US (occurrence: None)
  Receive Date: 20171122
  Receipt Date: 20171122
  Transmission Date: 20180321
  Serious: Yes (Hospitalization)
  Sender: FDA-Public Use
  Company Number: None

PATIENT
  Age: 79 Year
  Sex: Male

DRUGS (1)
  1. POMALYST [Suspect]
     Active Substance: POMALIDOMIDE
     Indication: PLASMA CELL MYELOMA
     Route: 048
     Dates: start: 20171104, end: 20171111

REACTIONS (4)
  - Sepsis [None]
  - Pneumonia haemophilus [None]
  - Bacteraemia [None]
  - Respiratory failure [None]

NARRATIVE: CASE EVENT DATE: 20171110
